FAERS Safety Report 5920994-2 (Version None)
Quarter: 2008Q4

REPORT INFORMATION
  Report Type: 
  Country: None (occurrence: None)
  Receive Date: 20081016
  Receipt Date: 20081007
  Transmission Date: 20090506
  Serious: Yes (Hospitalization, Other)
  Sender: FDA-Public Use
  Company Number: US-AVENTIS-200814661US

PATIENT
  Sex: Male
  Weight: 130.5 kg

DRUGS (1)
  1. KETEK [Suspect]
     Dates: start: 20041202, end: 20041210

REACTIONS (5)
  - ABDOMINAL PAIN [None]
  - CHOLECYSTITIS [None]
  - CHRONIC HEPATITIS [None]
  - LIVER FUNCTION TEST ABNORMAL [None]
  - PANCREATITIS [None]
